FAERS Safety Report 14557020 (Version 1)
Quarter: 2018Q1

REPORT INFORMATION
  Report Type: Spontaneous
  Country: NZ (occurrence: NZ)
  Receive Date: 20180221
  Receipt Date: 20180221
  Transmission Date: 20180509
  Serious: Yes (Death, Hospitalization, Other)
  Sender: FDA-Public Use
  Company Number: NZ-GLAXOSMITHKLINE-NZ2018GSK024214

PATIENT
  Age: 73 Year
  Sex: Female

DRUGS (1)
  1. DICLOFENAC [Suspect]
     Active Substance: DICLOFENAC
     Indication: OSTEOARTHRITIS
     Dosage: 100 MG, QD
     Dates: start: 1992

REACTIONS (8)
  - Arterial haemorrhage [Unknown]
  - Anaemia [Unknown]
  - Malaise [Unknown]
  - Myocardial infarction [Unknown]
  - Duodenal ulcer [Unknown]
  - Duodenal ulcer haemorrhage [Unknown]
  - Gastrointestinal haemorrhage [Fatal]
  - Melaena [Unknown]
